FAERS Safety Report 4340487-6 (Version None)
Quarter: 2004Q2

REPORT INFORMATION
  Report Type: 
  Country: None (occurrence: None)
  Receive Date: 20040414
  Receipt Date: 20040401
  Transmission Date: 20050107
  Serious: Yes (Hospitalization, Other)
  Sender: FDA-Public Use
  Company Number: 9929627

PATIENT
  Age: 85 Year
  Sex: Male

DRUGS (13)
  1. ZITHROMAX [Suspect]
     Indication: PNEUMONIA
     Dosage: 500 MG (DAILY), ORAL
     Route: 048
     Dates: start: 19980914, end: 19980917
  2. WARFARIN SODIUM [Suspect]
     Indication: ILL-DEFINED DISORDER
     Dosage: 3 MG (DAILY), ORAL
     Route: 048
  3. RANITIDINE HYDROCHLORIDE [Concomitant]
  4. DIGOXIN [Concomitant]
  5. FUROSEMIDE [Concomitant]
  6. BECLOMETHASONE DIPROPIONATE [Concomitant]
  7. SALBUTAMO (SALBUTAMOL) [Concomitant]
  8. IPRATROPIUM BROMIDE [Concomitant]
  9. PILOCARPINE (PILOCARPINE) [Concomitant]
  10. COLOXYL WITH SENNA (DOCUSATE SODIUM, SENNOSIDE A+B) [Concomitant]
  11. NITRAZEPAM [Concomitant]
  12. GENTAMICIN [Concomitant]
  13. QUININE (QUININE) [Concomitant]

REACTIONS (10)
  - ALANINE AMINOTRANSFERASE INCREASED [None]
  - ASPARTATE AMINOTRANSFERASE INCREASED [None]
  - BLOOD ALKALINE PHOSPHATASE INCREASED [None]
  - BLOOD BILIRUBIN INCREASED [None]
  - DRUG INTERACTION [None]
  - GAMMA-GLUTAMYLTRANSFERASE INCREASED [None]
  - INTERNATIONAL NORMALISED RATIO INCREASED [None]
  - LIVER FUNCTION TEST ABNORMAL [None]
  - PNEUMONIA [None]
  - PROTHROMBIN LEVEL DECREASED [None]
